FAERS Safety Report 7602665-X (Version None)
Quarter: 2011Q3

REPORT INFORMATION
  Report Type: 
  Country: None (occurrence: None)
  Receive Date: 20110701
  Receipt Date: 20110624
  Transmission Date: 20111222
  Serious: Yes (Death)
  Sender: FDA-Public Use
  Company Number: DSA_46804_2011

PATIENT
  Sex: Male

DRUGS (8)
  1. DEPAKOTE [Concomitant]
  2. RISPERDAL [Concomitant]
  3. XENAZINE [Suspect]
     Indication: HUNTINGTON'S DISEASE
     Dosage: (12.5 MG QD, AT BEDTIME ORAL), (12.5 MG BID ORAL), (12.5 MG QAM AND 25 QPM ORAL), (25 MG BID ORAL)
     Route: 048
     Dates: start: 20090528, end: 20090601
  4. XENAZINE [Suspect]
     Indication: HUNTINGTON'S DISEASE
     Dosage: (12.5 MG QD, AT BEDTIME ORAL), (12.5 MG BID ORAL), (12.5 MG QAM AND 25 QPM ORAL), (25 MG BID ORAL)
     Route: 048
     Dates: start: 20110101
  5. XENAZINE [Suspect]
     Indication: HUNTINGTON'S DISEASE
     Dosage: (12.5 MG QD, AT BEDTIME ORAL), (12.5 MG BID ORAL), (12.5 MG QAM AND 25 QPM ORAL), (25 MG BID ORAL)
     Route: 048
     Dates: start: 20090401, end: 20090527
  6. XENAZINE [Suspect]
     Indication: HUNTINGTON'S DISEASE
     Dosage: (12.5 MG QD, AT BEDTIME ORAL), (12.5 MG BID ORAL), (12.5 MG QAM AND 25 QPM ORAL), (25 MG BID ORAL)
     Route: 048
     Dates: start: 20090601, end: 20101010
  7. XENAZINE [Suspect]
     Indication: HUNTINGTON'S DISEASE
     Dosage: (12.5 MG QD, AT BEDTIME ORAL), (12.5 MG BID ORAL), (12.5 MG QAM AND 25 QPM ORAL), (25 MG BID ORAL)
     Route: 048
     Dates: start: 20110102, end: 20110101
  8. XENAZINE [Suspect]
     Indication: HUNTINGTON'S DISEASE
     Dosage: (12.5 MG QD, AT BEDTIME ORAL), (12.5 MG BID ORAL), (12.5 MG QAM AND 25 QPM ORAL), (25 MG BID ORAL)
     Route: 048
     Dates: start: 20090303, end: 20090401

REACTIONS (7)
  - NO THERAPEUTIC RESPONSE [None]
  - HEADACHE [None]
  - DIARRHOEA [None]
  - CHOREA [None]
  - CONDITION AGGRAVATED [None]
  - BALANCE DISORDER [None]
  - ILL-DEFINED DISORDER [None]
